FAERS Safety Report 16597039 (Version 1)
Quarter: 2019Q3

REPORT INFORMATION
  Report Type: Spontaneous
  Country: US (occurrence: US)
  Receive Date: 20190718
  Receipt Date: 20190718
  Transmission Date: 20191004
  Serious: No
  Sender: FDA-Public Use
  Company Number: None

PATIENT
  Age: 64 Year
  Sex: Female
  Weight: 78 kg

DRUGS (14)
  1. OMEPRAZOLE. [Concomitant]
     Active Substance: OMEPRAZOLE
  2. ONDANSETRON [Concomitant]
     Active Substance: ONDANSETRON
  3. PROCHLORPERAZINE. [Concomitant]
     Active Substance: PROCHLORPERAZINE
  4. LISINOPRIL. [Concomitant]
     Active Substance: LISINOPRIL
  5. LOVASTATIN. [Concomitant]
     Active Substance: LOVASTATIN
  6. DAILY MULTIVITAMIN [Concomitant]
     Active Substance: VITAMINS
  7. CAPECITABINE. [Suspect]
     Active Substance: CAPECITABINE
     Dosage: ?          OTHER FREQUENCY:1500 IN AM 1000 PM;?
     Route: 048
     Dates: start: 20190112, end: 20190717
  8. GLIPIZIDE. [Concomitant]
     Active Substance: GLIPIZIDE
  9. SUCRALFATE. [Concomitant]
     Active Substance: SUCRALFATE
  10. ELIQUIS [Concomitant]
     Active Substance: APIXABAN
  11. COLESTIPOL [Concomitant]
     Active Substance: COLESTIPOL
  12. FERROUS SULFATE. [Concomitant]
     Active Substance: FERROUS SULFATE
  13. METFORMIN [Concomitant]
     Active Substance: METFORMIN HYDROCHLORIDE
  14. METOPROLOL. [Concomitant]
     Active Substance: METOPROLOL

REACTIONS (1)
  - Swelling [None]

NARRATIVE: CASE EVENT DATE: 20190708
